FAERS Safety Report 5571394-9 (Version None)
Quarter: 2007Q4

REPORT INFORMATION
  Report Type: 
  Country: None (occurrence: None)
  Receive Date: 20071221
  Receipt Date: 20071101
  Transmission Date: 20080405
  Serious: No
  Sender: FDA-Public Use
  Company Number: A0685398A

PATIENT
  Age: 82 Year
  Sex: Male

DRUGS (4)
  1. FLUTICASONE PROPIONATE [Suspect]
     Dosage: 4SPR PER DAY
     Route: 045
  2. SIMVASTATIN [Concomitant]
     Dosage: 40MG PER DAY
  3. METOPROLOL [Concomitant]
     Dosage: 25MG PER DAY
  4. ASPIRIN [Concomitant]
     Dosage: 81MG PER DAY

REACTIONS (2)
  - DRUG INEFFECTIVE [None]
  - PHARMACEUTICAL PRODUCT COMPLAINT [None]
